FAERS Safety Report 4563027-5 (Version None)
Quarter: 2005Q1

REPORT INFORMATION
  Report Type: 
  Country: None (occurrence: None)
  Receive Date: 20050126
  Receipt Date: 20050117
  Transmission Date: 20050727
  Serious: Yes (Other)
  Sender: FDA-Public Use
  Company Number: GXBR2005US00444

PATIENT
  Age: 61 Year
  Sex: Male
  Weight: 99.8 kg

DRUGS (10)
  1. ALLOPURINOL [Suspect]
     Indication: GOUT
     Dosage: 100 MG, QHS, ORAL
     Route: 048
  2. BUPROPION HCL [Suspect]
     Indication: DEPRESSION
     Dosage: 300 MG, BID, ORAL
     Route: 048
     Dates: start: 20041116
  3. CLONAZEPAM [Suspect]
     Indication: DEPRESSION
     Dosage: 0.5 MG, QHS, ORAL
     Route: 048
  4. MIRTAZAPINE [Suspect]
     Indication: DEPRESSION
     Dosage: 45 MG, QHS, ORAL
     Route: 048
  5. PROCHLORPERAZINE MALEATE [Suspect]
     Indication: NAUSEA
     Dosage: 10 MG, PRN, ORAL
     Route: 048
     Dates: start: 20041115
  6. TRAZODONE HCL [Suspect]
     Indication: DEPRESSION
     Dosage: 50 MG, QHS, ORAL
     Route: 048
  7. INTRON A [Suspect]
     Indication: MALIGNANT MELANOMA STAGE III
     Dosage: 44 MIU, QW5, ORAL
     Route: 048
     Dates: start: 20041115, end: 20041221
  8. ZOCOR [Suspect]
     Indication: BLOOD CHOLESTEROL INCREASED
     Dosage: 10 MG, QD, ORAL
     Route: 048
  9. MULTIVITAMINS (ASCORBIC ACID, ERGOCALCIFEROL, FOLIC ACID, PANTHENOL... [Suspect]
     Dosage: PRN,  ORAL
     Route: 048
  10. GLUCOSAMINE (GLUCOSAMINE) [Suspect]
     Dosage: ORAL
     Route: 048

REACTIONS (7)
  - ASTHENIA [None]
  - CONFUSIONAL STATE [None]
  - DECREASED APPETITE [None]
  - DEHYDRATION [None]
  - DRUG INTERACTION [None]
  - LETHARGY [None]
  - NAUSEA [None]
